FAERS Safety Report 4769866-X (Version None)
Quarter: 2005Q3

REPORT INFORMATION
  Report Type: 
  Country: None (occurrence: None)
  Receive Date: 20050915
  Receipt Date: 20050817
  Transmission Date: 20060218
  Serious: Yes (Other)
  Sender: FDA-Public Use
  Company Number: US-AMGEN-KDL146949

PATIENT
  Sex: Female

DRUGS (5)
  1. ENBREL [Suspect]
     Indication: RHEUMATOID ARTHRITIS
     Route: 058
     Dates: start: 20050615, end: 20050812
  2. PLAQUENIL [Concomitant]
     Dates: start: 20050615
  3. DOXYCYCLINE [Concomitant]
  4. ZYRTEC [Concomitant]
  5. FLONASE [Concomitant]

REACTIONS (4)
  - PRURITUS [None]
  - RASH GENERALISED [None]
  - SWELLING FACE [None]
  - THROAT TIGHTNESS [None]
